FAERS Safety Report 12550863 (Version 1)
Quarter: 2016Q3

REPORT INFORMATION
  Report Type: Spontaneous
  Country: BR (occurrence: BR)
  Receive Date: 20160712
  Receipt Date: 20160712
  Transmission Date: 20161109
  Serious: Yes (Other)
  Sender: FDA-Public Use
  Company Number: BR-TEVA-673768ISR

PATIENT
  Sex: Male
  Weight: 70 kg

DRUGS (2)
  1. TEVAOXALI [Suspect]
     Active Substance: OXALIPLATIN
     Indication: RECTAL CANCER
     Dosage: THE LAST ADMINISTRATION OF TEVAOXALI BEFORE THE SAE 24-JUN-2016
     Route: 042
     Dates: start: 20160311
  2. OMEPRAZOLE. [Concomitant]
     Active Substance: OMEPRAZOLE

REACTIONS (4)
  - Pruritus [Recovered/Resolved]
  - Abdominal pain [Recovered/Resolved]
  - Throat irritation [Recovered/Resolved]
  - Hyperaemia [Recovered/Resolved]

NARRATIVE: CASE EVENT DATE: 2016
